FAERS Safety Report 5252615-9 (Version None)
Quarter: 2007Q1

REPORT INFORMATION
  Report Type: 
  Country: None (occurrence: None)
  Receive Date: 20070227
  Receipt Date: 20070227
  Transmission Date: 20070707
  Serious: Yes (Other)
  Sender: FDA-Public Use
  Company Number: None

PATIENT
  Age: 52 Year
  Sex: Female
  Weight: 56.6996 kg

DRUGS (1)
  1. LEVAQUIN [Suspect]
     Indication: SINUSITIS
     Dosage: 500MG   1 DAILY FOR 10 DAY  PO
     Route: 048
     Dates: start: 20070221, end: 20070221

REACTIONS (16)
  - ABDOMINAL DISTENSION [None]
  - BURNING SENSATION [None]
  - CHEST DISCOMFORT [None]
  - CHEST PAIN [None]
  - CHILLS [None]
  - ERUCTATION [None]
  - FEELING ABNORMAL [None]
  - FLATULENCE [None]
  - HEADACHE [None]
  - HYPERACUSIS [None]
  - INSOMNIA [None]
  - NAUSEA [None]
  - PAIN [None]
  - PHOTOPHOBIA [None]
  - PHOTOPSIA [None]
  - STOMACH DISCOMFORT [None]
